FAERS Safety Report 4613822-9 (Version None)
Quarter: 2005Q1

REPORT INFORMATION
  Report Type: 
  Country: None (occurrence: None)
  Receive Date: 20050315
  Receipt Date: 20040518
  Transmission Date: 20050727
  Serious: Yes (Death, Hospitalization)
  Sender: FDA-Public Use
  Company Number: 8024

PATIENT
  Age: 61 Year
  Sex: Male

DRUGS (13)
  1. FLUOROURACIL [Suspect]
     Indication: COLORECTAL CANCER METASTATIC
  2. LEUCOVORIN [Suspect]
     Indication: COLORECTAL CANCER METASTATIC
  3. DEXAMETHASONE [Suspect]
  4. OXALIPLATIN [Suspect]
     Indication: COLORECTAL CANCER METASTATIC
  5. PTK787/ZK 222584 VS PLACEBO [Suspect]
     Indication: COLORECTAL CANCER METASTATIC
  6. LANSOPRAZOLE [Concomitant]
  7. DOCUSATE SODIUM [Concomitant]
  8. DOXAZOSIN [Concomitant]
  9. DILTIAZEM [Concomitant]
  10. BECLOMETHASONE DIPROPIONATE [Concomitant]
  11. METFORMIN [Concomitant]
  12. FENTANYL [Concomitant]
  13. HYDROMORPHONE [Concomitant]

REACTIONS (17)
  - ABDOMINAL DISTENSION [None]
  - ABDOMINAL PAIN [None]
  - ASCITES [None]
  - BLOOD CREATININE INCREASED [None]
  - CANDIDIASIS [None]
  - COLORECTAL CANCER [None]
  - CULTURE URINE POSITIVE [None]
  - DYSPNOEA [None]
  - HYDRONEPHROSIS [None]
  - HYPERKALAEMIA [None]
  - HYPOTENSION [None]
  - HYPOXIA [None]
  - KLEBSIELLA INFECTION [None]
  - MALIGNANT NEOPLASM PROGRESSION [None]
  - NAUSEA [None]
  - PLEURAL EFFUSION [None]
  - VOMITING [None]
